FAERS Safety Report 22937274 (Version 2)
Quarter: 2025Q2

REPORT INFORMATION
  Report Type: Report from Study
  Country: NL (occurrence: NL)
  Receive Date: 20230913
  Receipt Date: 20250404
  Transmission Date: 20250717
  Serious: Yes (Other)
  Sender: AUROBINDO
  Company Number: NL-TEVA-2018-NL-882099

PATIENT
  Age: 62 Year

DRUGS (6)
  1. AMITRIPTYLINE [Interacting]
     Active Substance: AMITRIPTYLINE
     Indication: Metastases to bone
     Route: 065
  2. FENTANYL TRANSDERMAL SYSTEM [Interacting]
     Active Substance: FENTANYL
     Indication: Metastases to bone
     Dosage: 75 MICROGRAM, ONCE A DAY
     Route: 062
  3. FENTANYL TRANSDERMAL SYSTEM [Interacting]
     Active Substance: FENTANYL
     Route: 050
  4. PREGABALIN [Interacting]
     Active Substance: PREGABALIN
     Indication: Metastases to bone
     Route: 065
  5. DEXAMETHASONE [Interacting]
     Active Substance: DEXAMETHASONE
     Indication: Metastases to bone
     Dosage: 16 MILLIGRAM, ONCE A DAY
     Route: 065
  6. ENZALUTAMIDE [Interacting]
     Active Substance: ENZALUTAMIDE
     Indication: Hormone-refractory prostate cancer
     Route: 065

REACTIONS (2)
  - Drug ineffective [Recovering/Resolving]
  - Drug interaction [Recovering/Resolving]
